FAERS Safety Report 6660347-5 (Version None)
Quarter: 2010Q1

REPORT INFORMATION
  Report Type: 
  Country: None (occurrence: None)
  Receive Date: 20100331
  Receipt Date: 20091218
  Transmission Date: 20100710
  Serious: Yes (Life-Threatening, Other)
  Sender: FDA-Public Use
  Company Number: JP-JNJFOC-20090905098

PATIENT
  Sex: Female

DRUGS (12)
  1. CRAVIT [Suspect]
     Indication: INFECTION PROPHYLAXIS
     Route: 048
     Dates: start: 20090810, end: 20090813
  2. HERCEPTIN [Suspect]
     Indication: DRUG USE FOR UNKNOWN INDICATION
     Route: 042
  3. HERCEPTIN [Suspect]
     Route: 042
  4. HERCEPTIN [Suspect]
     Route: 042
  5. HERCEPTIN [Suspect]
     Route: 042
  6. TAXOTERE [Suspect]
     Indication: DRUG USE FOR UNKNOWN INDICATION
     Route: 065
  7. NAVOBAN [Concomitant]
     Route: 048
     Dates: start: 20090827
  8. DOCETAXEL [Concomitant]
     Route: 042
     Dates: start: 20090827
  9. KYTRIL [Concomitant]
     Route: 042
  10. NEUTROGIN [Concomitant]
     Route: 058
  11. NEUTROGIN [Concomitant]
     Route: 058
  12. DEXART [Concomitant]
     Route: 042

REACTIONS (3)
  - BLOOD CREATININE INCREASED [None]
  - STAPHYLOCOCCAL SCALDED SKIN SYNDROME [None]
  - TOXIC EPIDERMAL NECROLYSIS [None]
